FAERS Safety Report 10327531 (Version 1)
Quarter: 2014Q3

REPORT INFORMATION
  Report Type: Report from Study
  Country: GB (occurrence: GB)
  Receive Date: 20140721
  Receipt Date: 20140721
  Transmission Date: 20150326
  Serious: Yes (Death)
  Sender: FDA-Public Use
  Company Number: GB-ROCHE-1436635

PATIENT
  Age: 40 Year
  Sex: Female

DRUGS (1)
  1. CAPECITABINE [Suspect]
     Active Substance: CAPECITABINE
     Indication: MALIGNANT NIPPLE NEOPLASM
     Route: 048
     Dates: end: 20130528

REACTIONS (1)
  - Death [Fatal]
